FAERS Safety Report 14420022 (Version 3)
Quarter: 2018Q1

REPORT INFORMATION
  Report Type: Spontaneous
  Country: SE (occurrence: SE)
  Receive Date: 20180122
  Receipt Date: 20180227
  Transmission Date: 20180509
  Serious: Yes (Death)
  Sender: FDA-Public Use
  Company Number: SE-PFIZER INC-2018025328

PATIENT
  Age: 57 Year
  Sex: Male

DRUGS (7)
  1. SPIRONOLACTONE. [Suspect]
     Active Substance: SPIRONOLACTONE
     Dosage: UNK
     Route: 048
     Dates: start: 20170613, end: 201709
  2. DIGOXIN. [Suspect]
     Active Substance: DIGOXIN
     Indication: CARDIAC FAILURE
     Dosage: 0.13 MG, DAILY
     Route: 048
     Dates: start: 20111202, end: 201709
  3. SERETIDE DISCUS FORTE [Concomitant]
  4. ISOPTIN [Suspect]
     Active Substance: VERAPAMIL HYDROCHLORIDE
     Dosage: 480 MG, DAILY
     Route: 048
     Dates: start: 20090622, end: 201709
  5. FURIX [Concomitant]
     Active Substance: FUROSEMIDE
     Dosage: 1 DF, DAILY
     Dates: start: 20170706
  6. ENALAPRIL [Suspect]
     Active Substance: ENALAPRIL
     Dosage: 20 MG, DAILY
     Route: 048
     Dates: start: 20080130, end: 201709
  7. WARAN [Concomitant]
     Active Substance: WARFARIN SODIUM

REACTIONS (4)
  - Cardiac arrest [Fatal]
  - Toxicity to various agents [Fatal]
  - Seizure [Fatal]
  - Loss of consciousness [Fatal]

NARRATIVE: CASE EVENT DATE: 201709
